FAERS Safety Report 6056085-2 (Version None)
Quarter: 2009Q1

REPORT INFORMATION
  Report Type: 
  Country: None (occurrence: None)
  Receive Date: 20090126
  Receipt Date: 20090113
  Transmission Date: 20090719
  Serious: Yes (Other)
  Sender: FDA-Public Use
  Company Number: 2009AL000300

PATIENT
  Age: 56 Year
  Sex: Female

DRUGS (3)
  1. RANITIDINE [Suspect]
     Indication: PRURITUS
  2. ERYTHROPED [Concomitant]
  3. LORATADINE [Concomitant]

REACTIONS (9)
  - ALANINE AMINOTRANSFERASE INCREASED [None]
  - BURNING SENSATION [None]
  - CHOLESTASIS [None]
  - DYSGEUSIA [None]
  - FEELING ABNORMAL [None]
  - FOOD AVERSION [None]
  - JAUNDICE [None]
  - LIVER FUNCTION TEST ABNORMAL [None]
  - TONGUE DISCOLOURATION [None]
